FAERS Safety Report 6124027-7 (Version None)
Quarter: 2009Q1

REPORT INFORMATION
  Report Type: 
  Country: None (occurrence: None)
  Receive Date: 20090319
  Receipt Date: 20090316
  Transmission Date: 20090719
  Serious: Yes (Death)
  Sender: FDA-Public Use
  Company Number: FR-BRISTOL-MYERS SQUIBB COMPANY-14546162

PATIENT
  Age: 58 Year
  Sex: Male

DRUGS (5)
  1. SUSTIVA [Suspect]
     Indication: HIV INFECTION
  2. NORVIR [Suspect]
     Indication: HIV INFECTION
  3. ZIAGEN [Suspect]
     Indication: HIV INFECTION
  4. PREZISTA [Suspect]
     Indication: HIV INFECTION
  5. CRESTOR [Concomitant]

REACTIONS (1)
  - MYOCARDIAL INFARCTION [None]
